FAERS Safety Report 15606950 (Version 1)
Quarter: 2018Q4

REPORT INFORMATION
  Report Type: Spontaneous
  Country: US (occurrence: US)
  Receive Date: 20181112
  Receipt Date: 20181112
  Transmission Date: 20190205
  Serious: No
  Sender: FDA-Public Use
  Company Number: US-ASTRAZENECA-2018SF11154

PATIENT
  Age: 659 Month
  Sex: Male
  Weight: 118.8 kg

DRUGS (1)
  1. BYDUREON BCISE [Suspect]
     Active Substance: EXENATIDE
     Indication: TYPE 2 DIABETES MELLITUS
     Route: 058
     Dates: start: 201807

REACTIONS (5)
  - Injection site pain [Unknown]
  - Injection site nodule [Not Recovered/Not Resolved]
  - Device malfunction [Unknown]
  - Injection site swelling [Not Recovered/Not Resolved]
  - Injection site irritation [Not Recovered/Not Resolved]

NARRATIVE: CASE EVENT DATE: 201807
